FAERS Safety Report 24910272 (Version 1)
Quarter: 2025Q1

REPORT INFORMATION
  Report Type: Spontaneous
  Country: JP (occurrence: JP)
  Receive Date: 20250131
  Receipt Date: 20250131
  Transmission Date: 20250409
  Serious: Yes (Other)
  Sender: MERCK
  Company Number: JP-MSD-2410JPN001702J

PATIENT
  Age: 8 Decade
  Sex: Male

DRUGS (3)
  1. STROMECTOL [Suspect]
     Active Substance: IVERMECTIN
     Route: 048
     Dates: start: 20241007, end: 20241007
  2. STROMECTOL [Suspect]
     Active Substance: IVERMECTIN
     Route: 048
     Dates: start: 20241016, end: 20241016
  3. STROMECTOL [Suspect]
     Active Substance: IVERMECTIN
     Route: 048
     Dates: start: 20241209, end: 20241209

REACTIONS (2)
  - Plasma cell myeloma [Unknown]
  - Drug eruption [Recovered/Resolved]

NARRATIVE: CASE EVENT DATE: 20241215
